FAERS Safety Report 23075775 (Version 2)
Quarter: 2023Q4

REPORT INFORMATION
  Report Type: Spontaneous
  Country: JP (occurrence: JP)
  Receive Date: 20231017
  Receipt Date: 20231024
  Transmission Date: 20240109
  Serious: Yes (Other)
  Sender: FDA-Public Use
  Company Number: JP-MSD-2305JPN001684J

PATIENT
  Age: 62 Year
  Sex: Female

DRUGS (5)
  1. KEYTRUDA [Suspect]
     Active Substance: PEMBROLIZUMAB
     Indication: Uterine cancer
     Dosage: 200 MILLIGRAM, Q3W
     Route: 041
     Dates: start: 20230323, end: 20230612
  2. LENVATINIB MESYLATE [Suspect]
     Active Substance: LENVATINIB MESYLATE
     Indication: Uterine cancer
     Dosage: 20 MILLIGRAM, QD
     Route: 048
     Dates: start: 20230323, end: 20230504
  3. LENVATINIB MESYLATE [Suspect]
     Active Substance: LENVATINIB MESYLATE
     Dosage: 14 MILLIGRAM, QD
     Route: 048
     Dates: start: 20230505, end: 20230521
  4. LENVATINIB MESYLATE [Suspect]
     Active Substance: LENVATINIB MESYLATE
     Dosage: 10 MILLIGRAM, QD
     Route: 048
     Dates: start: 20230522, end: 20230612
  5. ADRIACIN [Suspect]
     Active Substance: DOXORUBICIN HYDROCHLORIDE
     Indication: Uterine cancer
     Dosage: UNK
     Route: 065
     Dates: start: 2023

REACTIONS (10)
  - Malignant neoplasm progression [Unknown]
  - Hyperthyroidism [Recovered/Resolved]
  - Hypothyroidism [Recovering/Resolving]
  - Interstitial lung disease [Recovered/Resolved]
  - Blood corticotrophin increased [Recovering/Resolving]
  - KL-6 increased [Unknown]
  - Lung opacity [Unknown]
  - Condition aggravated [Unknown]
  - Respiratory disorder [Recovering/Resolving]
  - Pyrexia [Unknown]

NARRATIVE: CASE EVENT DATE: 20230101
